FAERS Safety Report 6903213-X (Version None)
Quarter: 2010Q3

REPORT INFORMATION
  Report Type: 
  Country: None (occurrence: None)
  Receive Date: 20100803
  Receipt Date: 20080814
  Transmission Date: 20110219
  Serious: Yes (Other)
  Sender: FDA-Public Use
  Company Number: US-PFIZER INC-2008060047

PATIENT
  Sex: Female
  Weight: 94.8 kg

DRUGS (8)
  1. LYRICA [Suspect]
     Indication: FIBROMYALGIA
     Dates: start: 20070831, end: 20071101
  2. OXYCODONE [Concomitant]
  3. OXYCONTIN [Concomitant]
  4. VALIUM [Concomitant]
  5. CYMBALTA [Concomitant]
  6. SYNTHROID [Concomitant]
  7. ALBUTEROL [Concomitant]
  8. CRESTOR [Concomitant]

REACTIONS (8)
  - EXCORIATION [None]
  - GASTROOESOPHAGEAL REFLUX DISEASE [None]
  - OEDEMA PERIPHERAL [None]
  - RASH PRURITIC [None]
  - SCAR [None]
  - SKIN DISCOLOURATION [None]
  - STAPHYLOCOCCAL INFECTION [None]
  - SWOLLEN TONGUE [None]
